FAERS Safety Report 7089433-5 (Version None)
Quarter: 2010Q4

REPORT INFORMATION
  Report Type: 
  Country: None (occurrence: None)
  Receive Date: 20101108
  Receipt Date: 20101103
  Transmission Date: 20110411
  Serious: Yes (Death)
  Sender: FDA-Public Use
  Company Number: US-SANOFI-AVENTIS-2010SA067440

PATIENT
  Age: 74 Year
  Sex: Male
  Weight: 77.1 kg

DRUGS (4)
  1. PLAVIX [Suspect]
     Route: 065
     Dates: start: 20100929
  2. PLAVIX [Suspect]
     Indication: STENT PLACEMENT
     Route: 065
     Dates: start: 20100929
  3. ANTIHYPERTENSIVES [Concomitant]
  4. OTHER LIPID MODIFYING AGENTS [Concomitant]

REACTIONS (3)
  - CARDIAC ARREST [None]
  - CORONARY ARTERY OCCLUSION [None]
  - HAEMORRHAGIC STROKE [None]
